FAERS Safety Report 8885875 (Version 1)
Quarter: 2012Q4

REPORT INFORMATION
  Report Type: 
  Country: SG (occurrence: SG)
  Receive Date: 20121105
  Receipt Date: 20121105
  Transmission Date: 20130627
  Serious: Yes (Life-Threatening, Hospitalization)
  Sender: FDA-Public Use
  Company Number: PHHO2012SG007998

PATIENT
  Age: 69 Year
  Sex: Male
  Weight: 55.1 kg

DRUGS (6)
  1. PREDNISOLONE [Suspect]
  2. PLACEBO [Suspect]
     Indication: CARDIAC FAILURE
     Route: 048
     Dates: start: 20111123
  3. PLACEBO [Suspect]
     Route: 048
     Dates: start: 20111219
  4. NOVOMIX [Concomitant]
     Indication: DIABETES MELLITUS
     Dosage: 6 U, UNK
  5. NOVOMIX [Concomitant]
     Dosage: 4 U, UNK
  6. LASIX [Concomitant]
     Route: 048

REACTIONS (4)
  - Cardiac failure congestive [Recovered/Resolved]
  - Coronary artery restenosis [Recovered/Resolved]
  - Cardiac failure [Recovering/Resolving]
  - Myocardial ischaemia [Recovered/Resolved]
